FAERS Safety Report 9169193 (Version 1)
Quarter: 2013Q1

REPORT INFORMATION
  Report Type: Spontaneous
  Country: FR (occurrence: FR)
  Receive Date: 20130318
  Receipt Date: 20130318
  Transmission Date: 20140127
  Serious: Yes (Hospitalization)
  Sender: FDA-Public Use
  Company Number: FR-ROCHE-1199987

PATIENT
  Age: 52 Year
  Sex: Male

DRUGS (2)
  1. ZELBORAF [Suspect]
     Indication: METASTATIC MALIGNANT MELANOMA
     Route: 048
     Dates: start: 20111216, end: 20120412
  2. ZELBORAF [Suspect]
     Route: 048
     Dates: start: 20120426

REACTIONS (3)
  - Panniculitis [Unknown]
  - Arthralgia [Unknown]
  - Hyperthermia [Unknown]
